FAERS Safety Report 7325697-8 (Version None)
Quarter: 2011Q1

REPORT INFORMATION
  Report Type: 
  Country: None (occurrence: None)
  Receive Date: 20110302
  Receipt Date: 20110222
  Transmission Date: 20110831
  Serious: Yes (Hospitalization)
  Sender: FDA-Public Use
  Company Number: US-ELI_LILLY_AND_COMPANY-US201102006693

PATIENT
  Sex: Female

DRUGS (9)
  1. PREDNISONE [Concomitant]
  2. VICODIN [Concomitant]
  3. ALDACTONE [Concomitant]
  4. SPIRIVA [Concomitant]
  5. LASIX [Concomitant]
  6. ZOLOFT [Concomitant]
  7. FORTEO [Suspect]
     Indication: OSTEOPOROSIS
     Dosage: 20 UG, DAILY (1/D)
  8. ADVAIR DISKUS 100/50 [Concomitant]
  9. ZOCOR [Concomitant]

REACTIONS (2)
  - CHRONIC OBSTRUCTIVE PULMONARY DISEASE [None]
  - ACUTE RESPIRATORY FAILURE [None]
